FAERS Safety Report 7241052-3 (Version None)
Quarter: 2011Q1

REPORT INFORMATION
  Report Type: 
  Country: None (occurrence: None)
  Receive Date: 20110124
  Receipt Date: 20110111
  Transmission Date: 20110831
  Serious: Yes (Death)
  Sender: FDA-Public Use
  Company Number: US-ACTELION-A-NJ2011-43768

PATIENT

DRUGS (5)
  1. COUMADIN [Concomitant]
  2. LASIX [Concomitant]
  3. CALCIUM CHANNEL BLOCKERS [Concomitant]
  4. TADALAFIL [Concomitant]
  5. BOSENTAN TABLET UNKNOWN US MG [Suspect]
     Indication: PULMONARY ARTERIAL HYPERTENSION
     Dosage: UNK
     Route: 048
     Dates: start: 20100810

REACTIONS (1)
  - DEATH [None]
